FAERS Safety Report 25454936 (Version 1)
Quarter: 2025Q2

REPORT INFORMATION
  Report Type: Spontaneous
  Country: CN (occurrence: CN)
  Receive Date: 20250619
  Receipt Date: 20250619
  Transmission Date: 20250716
  Serious: Yes (Other)
  Sender: RANBAXY
  Company Number: CN-SUN PHARMACEUTICAL INDUSTRIES LTD-2025R1-512383

PATIENT
  Age: 66 Year
  Sex: Female

DRUGS (2)
  1. OXALIPLATIN [Suspect]
     Active Substance: OXALIPLATIN
     Indication: Colorectal cancer
     Route: 065
  2. RALTITREXED [Suspect]
     Active Substance: RALTITREXED
     Indication: Colorectal cancer
     Route: 065

REACTIONS (2)
  - Gastrointestinal disorder [Unknown]
  - Disease progression [Unknown]
